FAERS Safety Report 5167655-8 (Version None)
Quarter: 2006Q4

REPORT INFORMATION
  Report Type: 
  Country: None (occurrence: None)
  Receive Date: 20061201
  Receipt Date: 20061201
  Transmission Date: 20070319
  Serious: Yes (Life-Threatening, Hospitalization, Other)
  Sender: FDA-Public Use
  Company Number: None

PATIENT
  Age: 85 Year
  Sex: Male
  Weight: 94.5 kg

DRUGS (1)
  1. CIALIS [Suspect]
     Dosage: X1 PO
     Route: 048
     Dates: start: 20061110, end: 20061110

REACTIONS (3)
  - ANGINA PECTORIS [None]
  - DIZZINESS [None]
  - VENTRICULAR TACHYCARDIA [None]
